FAERS Safety Report 13680877 (Version 1)
Quarter: 2017Q2

REPORT INFORMATION
  Report Type: Spontaneous
  Country: US (occurrence: US)
  Receive Date: 20170623
  Receipt Date: 20170623
  Transmission Date: 20170830
  Serious: Yes (Hospitalization)
  Sender: FDA-Public Use
  Company Number: US-009507513-1706USA006053

PATIENT
  Sex: Female

DRUGS (1)
  1. NEXPLANON [Suspect]
     Active Substance: ETONOGESTREL
     Indication: CONTRACEPTION
     Dosage: 1 ROD/ EVERY 3 YEARS
     Route: 059
     Dates: start: 20170606, end: 20170613

REACTIONS (8)
  - Device difficult to use [Recovered/Resolved]
  - Complication of device removal [Recovered/Resolved]
  - Implant site pain [Unknown]
  - Implant site bruising [Unknown]
  - Hot flush [Unknown]
  - Nausea [Unknown]
  - Device deployment issue [Recovered/Resolved]
  - Implant site swelling [Unknown]

NARRATIVE: CASE EVENT DATE: 201706
